FAERS Safety Report 8388254-0 (Version None)
Quarter: 2012Q2

REPORT INFORMATION
  Report Type: 
  Country: None (occurrence: None)
  Receive Date: 20120525
  Receipt Date: 20120523
  Transmission Date: 20120825
  Serious: Yes (Death)
  Sender: FDA-Public Use
  Company Number: JP-PFIZER INC-2012119714

PATIENT
  Age: 80 Year
  Sex: Male

DRUGS (2)
  1. LYRICA [Suspect]
     Indication: SPINAL OSTEOARTHRITIS
     Dosage: 75 MG, 1X/DAY
     Route: 048
  2. LYRICA [Suspect]
     Dosage: 75 MG IN MORNING,150 MG IN EVENING
     Route: 048
     Dates: end: 20120511

REACTIONS (2)
  - DEATH [None]
  - OEDEMA PERIPHERAL [None]
